FAERS Safety Report 7302882-2 (Version None)
Quarter: 2011Q1

REPORT INFORMATION
  Report Type: 
  Country: None (occurrence: None)
  Receive Date: 20110218
  Receipt Date: 20110209
  Transmission Date: 20110831
  Serious: Yes (Hospitalization)
  Sender: FDA-Public Use
  Company Number: AU-ASTRAZENECA-2011SE07448

PATIENT
  Age: 46 Year
  Sex: Male

DRUGS (8)
  1. QUETIAPINE [Interacting]
     Indication: AGITATION
     Route: 048
  2. CODEINE PHOSPHATE [Suspect]
  3. ESCITALOPRAM [Concomitant]
     Indication: DEPRESSED MOOD
     Dosage: 10 MG IN THE MORNING
  4. IRBESARTAN [Interacting]
     Indication: HYPERTENSION
  5. HYDROCHLOROTHIAZIDE [Interacting]
     Indication: HYPERTENSION
  6. PAROXETINE [Suspect]
  7. ACETAMINOPHEN [Suspect]
  8. ESCITALOPRAM [Concomitant]
     Indication: ADJUSTMENT DISORDER
     Dosage: 10 MG IN THE MORNING

REACTIONS (10)
  - RENAL IMPAIRMENT [None]
  - FALL [None]
  - HEPATIC FUNCTION ABNORMAL [None]
  - SUICIDAL IDEATION [None]
  - ADJUSTMENT DISORDER WITH DEPRESSED MOOD [None]
  - HYPOTENSION [None]
  - FEELING OF DESPAIR [None]
  - MULTIPLE DRUG OVERDOSE [None]
  - DRUG INTERACTION [None]
  - AGITATION [None]
